FAERS Safety Report 6114005-6 (Version None)
Quarter: 2009Q1

REPORT INFORMATION
  Report Type: 
  Country: None (occurrence: None)
  Receive Date: 20090312
  Receipt Date: 20081107
  Transmission Date: 20090719
  Serious: No
  Sender: FDA-Public Use
  Company Number: US-ABBOTT-08P-163-0487010-00

PATIENT
  Sex: Female

DRUGS (3)
  1. LUPRON DEPOT [Suspect]
     Indication: ENDOMETRIOSIS
     Dosage: EVERY 3 MONTHS
     Route: 030
     Dates: start: 20070101
  2. NORETHINDRONE ACETATE [Suspect]
     Indication: HOT FLUSH
     Dates: start: 20080701
  3. LAMOTRIGINE [Concomitant]
     Indication: DEPRESSION

REACTIONS (2)
  - HOT FLUSH [None]
  - NAUSEA [None]
